FAERS Safety Report 5887566-X (Version None)
Quarter: 2008Q3

REPORT INFORMATION
  Report Type: 
  Country: None (occurrence: None)
  Receive Date: 20080918
  Receipt Date: 20080911
  Transmission Date: 20090109
  Serious: Yes (Hospitalization)
  Sender: FDA-Public Use
  Company Number: PHHY2008GB16322

PATIENT
  Sex: Male

DRUGS (9)
  1. CLOZARIL [Suspect]
     Indication: SCHIZOPHRENIA
     Dosage: 100 MG
     Route: 048
     Dates: start: 20080714, end: 20080721
  2. OLANZAPINE [Suspect]
  3. FLUOXETINE [Concomitant]
     Dosage: 60 MG MANE
     Route: 048
  4. VALPROATE SODIUM [Concomitant]
     Dosage: 2 GM/DAY
     Route: 048
  5. SIMVASTATIN [Concomitant]
     Dosage: 40 MG
     Route: 048
  6. LANSOPRAZOLE [Concomitant]
     Dosage: 30 MG
     Route: 048
  7. PROCYCLIDINE HYDROCHLORIDE 2MG TAB [Concomitant]
     Dosage: 5 MG, PRN (MAX. X3 DAILY)
     Route: 048
  8. RISPERIDONE [Concomitant]
     Dosage: 8 MG/DAY
     Route: 048
  9. HYOSCINE [Concomitant]

REACTIONS (9)
  - COMPUTERISED TOMOGRAM ABDOMEN ABNORMAL [None]
  - DRUG HYPERSENSITIVITY [None]
  - DYSPEPSIA [None]
  - GASTRIC VOLVULUS [None]
  - GASTRITIS [None]
  - GASTROINTESTINAL HAEMORRHAGE [None]
  - HIATUS HERNIA [None]
  - MALAISE [None]
  - VOMITING [None]
